FAERS Safety Report 5999407-0 (Version None)
Quarter: 2008Q4

REPORT INFORMATION
  Report Type: 
  Country: None (occurrence: None)
  Receive Date: 20081215
  Receipt Date: 20081201
  Transmission Date: 20090506
  Serious: Yes (Death, Hospitalization, Other)
  Sender: FDA-Public Use
  Company Number: FR-AMGEN-UK310970

PATIENT
  Age: 77 Year
  Sex: Female

DRUGS (4)
  1. ARANESP [Suspect]
     Indication: ANAEMIA
     Dates: start: 20050101
  2. DEXAMETHASONE [Concomitant]
     Route: 065
     Dates: start: 20040501
  3. CORTICOSTEROID NOS [Concomitant]
     Route: 065
  4. COLCHICINE [Concomitant]
     Route: 065

REACTIONS (4)
  - ACUTE FEBRILE NEUTROPHILIC DERMATOSIS [None]
  - ANAEMIA [None]
  - LUNG DISORDER [None]
  - PYODERMA GANGRENOSUM [None]
